FAERS Safety Report 10381216 (Version 2)
Quarter: 2014Q3

REPORT INFORMATION
  Report Type: Spontaneous
  Country: US (occurrence: US)
  Receive Date: 20140813
  Receipt Date: 20140902
  Transmission Date: 20150326
  Serious: Yes (Hospitalization)
  Sender: FDA-Public Use
  Company Number: US-ASTRAZENECA-2014SE56950

PATIENT
  Age: 74 Year
  Sex: Female
  Weight: 58.5 kg

DRUGS (5)
  1. PULMICORT FLEXHALER [Suspect]
     Active Substance: BUDESONIDE
     Indication: ASTHMA
     Route: 055
     Dates: start: 2012, end: 2014
  2. PULMICORT FLEXHALER [Suspect]
     Active Substance: BUDESONIDE
     Indication: ASPIRIN-EXACERBATED RESPIRATORY DISEASE
     Route: 055
     Dates: start: 2012, end: 2014
  3. PULMICORT FLEXHALER [Suspect]
     Active Substance: BUDESONIDE
     Indication: NASAL POLYPS
     Route: 055
     Dates: start: 2012, end: 2014
  4. PULMICORT FLEXHALER [Suspect]
     Active Substance: BUDESONIDE
     Indication: RESPIRATORY DISORDER
     Route: 055
     Dates: start: 2012, end: 2014
  5. QNASL [Concomitant]
     Active Substance: BECLOMETHASONE DIPROPIONATE
     Indication: NASAL DISORDER
     Dosage: NOT REPORTED BID

REACTIONS (6)
  - Drug dose omission [Unknown]
  - Device failure [Unknown]
  - Nasal polyps [Recovered/Resolved]
  - Circumstance or information capable of leading to device use error [Unknown]
  - Device misuse [Unknown]
  - Intentional product misuse [Unknown]

NARRATIVE: CASE EVENT DATE: 2012
